FAERS Safety Report 6377316-5 (Version None)
Quarter: 2009Q3

REPORT INFORMATION
  Report Type: 
  Country: None (occurrence: None)
  Receive Date: 20090925
  Receipt Date: 20090916
  Transmission Date: 20100115
  Serious: Yes (Disabling, Other)
  Sender: FDA-Public Use
  Company Number: RU-ABBOTT-09P-251-0598759-00

PATIENT
  Age: 33 Year
  Sex: Female

DRUGS (8)
  1. DEPAKENE [Suspect]
     Indication: EPILEPSY
  2. PHENYTOIN [Concomitant]
     Indication: GRAND MAL CONVULSION
     Dosage: NOT REPORTED
  3. PHENYTOIN [Concomitant]
  4. PHENYTOIN [Concomitant]
  5. LEVETIRACETAM [Concomitant]
     Indication: GRAND MAL CONVULSION
     Dosage: NOT REPORTED
  6. LEVETIRACETAM [Concomitant]
  7. LEVETIRACETAM [Concomitant]
  8. OXCARBAZEPINE [Concomitant]
     Indication: GRAND MAL CONVULSION

REACTIONS (2)
  - DRUG LEVEL ABOVE THERAPEUTIC [None]
  - ILL-DEFINED DISORDER [None]
